FAERS Safety Report 24065981 (Version 1)
Quarter: 2024Q3

REPORT INFORMATION
  Report Type: Spontaneous
  Country: DE (occurrence: DE)
  Receive Date: 20240709
  Receipt Date: 20240709
  Transmission Date: 20241017
  Serious: No
  Sender: DR REDDYS
  Company Number: DE-GERMAN-SPO/DEU/24/0005000

PATIENT
  Age: 57 Year
  Sex: Female

DRUGS (3)
  1. OXYCODONE HYDROCHLORIDE [Suspect]
     Active Substance: OXYCODONE HYDROCHLORIDE
     Indication: Pain
     Dosage: 2-2-2 PER ORAL
     Route: 048
     Dates: start: 202208
  2. OXYCODONE HYDROCHLORIDE [Suspect]
     Active Substance: OXYCODONE HYDROCHLORIDE
     Indication: Pain
     Dosage: 1-0-2-PER ORAL.
     Route: 048
     Dates: start: 202208
  3. OXYCODONE HYDROCHLORIDE [Suspect]
     Active Substance: OXYCODONE HYDROCHLORIDE
     Indication: Pain
     Dosage: 2-2-2-PER ORAL
     Route: 048
     Dates: start: 202208

REACTIONS (3)
  - Withdrawal syndrome [Recovered/Resolved]
  - Tremor [Unknown]
  - Therapeutic product effect decreased [Recovered/Resolved]
